FAERS Safety Report 5854519-7 (Version None)
Quarter: 2008Q3

REPORT INFORMATION
  Report Type: 
  Country: None (occurrence: None)
  Receive Date: 20080822
  Receipt Date: 20070820
  Transmission Date: 20090109
  Serious: No
  Sender: FDA-Public Use
  Company Number: US-ABBOTT-07P-163-0378772-00

PATIENT
  Sex: Female
  Weight: 12.258 kg

DRUGS (1)
  1. SYNTHROID [Suspect]
     Indication: HORMONE REPLACEMENT THERAPY
     Route: 048
     Dates: start: 20040401

REACTIONS (2)
  - RASH [None]
  - URTICARIA [None]
